FAERS Safety Report 16595272 (Version 1)
Quarter: 2019Q3

REPORT INFORMATION
  Report Type: Spontaneous
  Country: FR (occurrence: FR)
  Receive Date: 20190718
  Receipt Date: 20190718
  Transmission Date: 20191004
  Serious: Yes (Hospitalization)
  Sender: FDA-Public Use
  Company Number: FR-AUROBINDO-AUR-APL-2019-041329

PATIENT

DRUGS (1)
  1. PARACETAMOL [Suspect]
     Active Substance: ACETAMINOPHEN
     Indication: PRODUCT USED FOR UNKNOWN INDICATION
     Dosage: 13 GRAM
     Route: 048
     Dates: start: 20190625, end: 20190625

REACTIONS (2)
  - Abdominal pain [Unknown]
  - Analgesic drug level increased [Unknown]

NARRATIVE: CASE EVENT DATE: 20190625
